FAERS Safety Report 9188724 (Version 3)
Quarter: 2013Q2

REPORT INFORMATION
  Report Type: Spontaneous
  Country: AU (occurrence: AU)
  Receive Date: 20130325
  Receipt Date: 20130513
  Transmission Date: 20140414
  Serious: Yes (Death)
  Sender: FDA-Public Use
  Company Number: AU-ASTRAZENECA-2013SE18603

PATIENT
  Age: 10958 Day
  Sex: Male

DRUGS (5)
  1. SEROQUEL XR [Suspect]
     Indication: DEPRESSION
     Dosage: 300 MG MOSTLY
     Route: 048
     Dates: start: 201204, end: 20121208
  2. SEROQUEL XR [Suspect]
     Indication: ANXIETY
     Dosage: 300 MG MOSTLY
     Route: 048
     Dates: start: 201204, end: 20121208
  3. SEROQUEL XR [Suspect]
     Indication: INSOMNIA
     Dosage: 300 MG MOSTLY
     Route: 048
     Dates: start: 201204, end: 20121208
  4. AVANZA [Concomitant]
     Indication: ANXIETY
     Dates: start: 201206, end: 20121208
  5. AVANZA [Concomitant]
     Indication: DEPRESSION
     Dates: start: 201206, end: 20121208

REACTIONS (2)
  - Drowning [Fatal]
  - Antipsychotic drug level above therapeutic [Fatal]
